FAERS Safety Report 8742856 (Version 2)
Quarter: 2012Q4

REPORT INFORMATION
  Report Type: 
  Country: US (occurrence: US)
  Receive Date: 20120824
  Receipt Date: 20121121
  Transmission Date: 20130627
  Serious: No
  Sender: FDA-Public Use
  Company Number: US-GLAXOSMITHKLINE-A0983041A

PATIENT
  Age: 67 Year
  Sex: Male
  Weight: 85.6 kg

DRUGS (7)
  1. ARZERRA [Suspect]
     Indication: CHRONIC LYMPHOCYTIC LEUKAEMIA
     Route: 042
     Dates: start: 20120701
  2. BENDAMUSTINE [Concomitant]
  3. RITUXAN [Concomitant]
  4. NEULASTA [Concomitant]
  5. LEVAQUIN [Concomitant]
  6. BACTRIM [Concomitant]
  7. ACYCLOVIR [Concomitant]

REACTIONS (4)
  - Injection site swelling [Recovered/Resolved]
  - Injection site erythema [Unknown]
  - Chills [Unknown]
  - Infusion site extravasation [Unknown]
